FAERS Safety Report 7963936-0 (Version None)
Quarter: 2011Q4

REPORT INFORMATION
  Report Type: 
  Country: None (occurrence: None)
  Receive Date: 20111208
  Receipt Date: 20111110
  Transmission Date: 20120403
  Serious: No
  Sender: FDA-Public Use
  Company Number: US-BAYER-2011-109712

PATIENT
  Age: 68 Year
  Sex: Female
  Weight: 54 kg

DRUGS (9)
  1. MAGNESIUM [MAGNESIUM] [Concomitant]
  2. MULTI-VITAMIN [Concomitant]
  3. LOVAZA [Concomitant]
  4. SELENIUM [SELENIUM] [Concomitant]
  5. CALCIUM CARBONATE [Concomitant]
  6. ALEVE (CAPLET) [Suspect]
     Indication: ANALGESIC THERAPY
     Dosage: 2 DF, UNK
     Route: 048
     Dates: start: 20111105, end: 20111105
  7. ASCORBIC ACID [Concomitant]
  8. LACTOBACILLUS ACID [Concomitant]
  9. VITAMIN B COMPLEX CAP [Concomitant]

REACTIONS (3)
  - ABDOMINAL DISCOMFORT [None]
  - HEADACHE [None]
  - VOMITING [None]
